FAERS Safety Report 7690289-8 (Version None)
Quarter: 2011Q3

REPORT INFORMATION
  Report Type: 
  Country: None (occurrence: None)
  Receive Date: 20110818
  Receipt Date: 20110808
  Transmission Date: 20111222
  Serious: Yes (Hospitalization, Disabling, Other)
  Sender: FDA-Public Use
  Company Number: US-ELI_LILLY_AND_COMPANY-US201003000572

PATIENT
  Sex: Male
  Weight: 122.45 kg

DRUGS (9)
  1. BYETTA [Suspect]
     Dosage: 5 UG, BID
     Dates: start: 20060101, end: 20090319
  2. GLUCOPHAGE [Concomitant]
  3. LIPITOR [Concomitant]
     Dosage: UNK
  4. LANTUS [Concomitant]
  5. ACTOS [Concomitant]
  6. ACCOLATE [Concomitant]
     Dosage: 10 MG, BID
  7. ZETIA [Concomitant]
  8. ALBUTEROL SULFATE AUTOHALER [Concomitant]
  9. ASMANEX TWISTHALER [Concomitant]

REACTIONS (4)
  - RENAL DISORDER [None]
  - MULTI-ORGAN DISORDER [None]
  - PANCREATITIS ACUTE [None]
  - OFF LABEL USE [None]
